FAERS Safety Report 6198047-0 (Version None)
Quarter: 2009Q2

REPORT INFORMATION
  Report Type: 
  Country: None (occurrence: None)
  Receive Date: 20090518
  Receipt Date: 20090511
  Transmission Date: 20091009
  Serious: Yes (Hospitalization, Other)
  Sender: FDA-Public Use
  Company Number: 1000006205

PATIENT
  Age: 82 Year
  Sex: Female

DRUGS (12)
  1. NAMENDA [Suspect]
     Indication: DEMENTIA ALZHEIMER'S TYPE
     Dosage: 5 MG (5 MG, 1 IN 1 D), ORAL
     Route: 048
  2. ARICEPT [Suspect]
     Indication: DEMENTIA ALZHEIMER'S TYPE
     Dates: end: 20090501
  3. REMERON [Concomitant]
  4. MULTI-VITAMIN [Concomitant]
  5. DILTIAZEM [Concomitant]
  6. POTASSIUM CHLORIDE [Concomitant]
  7. FOLIC ACID [Concomitant]
  8. AMBIEN [Concomitant]
  9. MEGACE [Concomitant]
  10. LASIX [Concomitant]
  11. LISINOPRIL [Concomitant]
  12. IRON [Concomitant]

REACTIONS (3)
  - GASTROINTESTINAL HAEMORRHAGE [None]
  - HIATUS HERNIA [None]
  - PEPTIC ULCER [None]
